FAERS Safety Report 10202639 (Version 2)
Quarter: 2014Q2

REPORT INFORMATION
  Report Type: Spontaneous
  Country: US (occurrence: US)
  Receive Date: 20140528
  Receipt Date: 20140528
  Transmission Date: 20141212
  Serious: Yes (Hospitalization)
  Sender: FDA-Public Use
  Company Number: GXKR2004US03990

PATIENT
  Age: 53 Year
  Sex: Male

DRUGS (22)
  1. FLUCONAZOLE [Suspect]
     Indication: CANDIDA INFECTION
     Dosage: FIRST DAY 400 MG
     Route: 042
  2. FLUCONAZOLE [Interacting]
     Dosage: SECOND DAY: 200 MG WITHOUT
     Route: 042
  3. LEVOFLOXACIN [Interacting]
     Indication: PNEUMONIA
     Dosage: FIRST TWO DAYS: 250 MG, THEN
  4. ACETYLSALICYLIC ACID [Concomitant]
     Dosage: 325 MG, UNK
  5. METOPROLOL [Concomitant]
     Dosage: 50 MG, BID
  6. WARFARIN [Concomitant]
  7. FLUVASTATIN [Concomitant]
     Dosage: 40 MG, UNK
  8. ISOPHANE INSULIN [Concomitant]
     Dosage: 18 UNITS, QD
  9. NEPHROCAPS [Concomitant]
  10. SEVELAMER [Concomitant]
     Dosage: 500 MG, TID
  11. ALBUTEROL [Concomitant]
  12. OXYGEN THERAPY [Concomitant]
  13. LISINOPRIL [Concomitant]
  14. CLOPIDOGREL [Concomitant]
  15. PANTOPRAZOLE [Concomitant]
  16. AMLODIPINE [Concomitant]
  17. SERTRALINE [Concomitant]
  18. EPOETIN ALFA [Concomitant]
  19. NOREPINEPHRINE [Concomitant]
  20. RANITIDINE [Concomitant]
  21. POTASSIUM CHLORIDE [Concomitant]
  22. PIPERACILLIN SODIUM W/TAZOBACTAM SODIUM [Concomitant]
     Indication: PNEUMONIA
     Dosage: 2.25 G, Q8H

REACTIONS (4)
  - Electrocardiogram QT prolonged [Recovered/Resolved]
  - Bradyarrhythmia [Recovered/Resolved]
  - Torsade de pointes [Recovered/Resolved]
  - Drug interaction [Recovered/Resolved]
